FAERS Safety Report 19208950 (Version 1)
Quarter: 2021Q2

REPORT INFORMATION
  Report Type: Spontaneous
  Country: AU (occurrence: AU)
  Receive Date: 20210503
  Receipt Date: 20210503
  Transmission Date: 20210717
  Serious: Yes (Hospitalization, Other)
  Sender: FDA-Public Use
  Company Number: AU-SA-2021SA136247

PATIENT
  Age: 26 Year
  Sex: Female

DRUGS (1)
  1. ENOXAPARIN SODIUM. [Suspect]
     Active Substance: ENOXAPARIN SODIUM
     Indication: PULMONARY EMBOLISM
     Dosage: 100 MG

REACTIONS (5)
  - Platelet count decreased [Unknown]
  - Postoperative wound infection [Unknown]
  - Haemolysis [Unknown]
  - Exposure during pregnancy [Unknown]
  - Hepatic enzyme increased [Unknown]
